FAERS Safety Report 8516450-8 (Version None)
Quarter: 2012Q3

REPORT INFORMATION
  Report Type: 
  Country: None (occurrence: None)
  Receive Date: 20120718
  Receipt Date: 20120713
  Transmission Date: 20120928
  Serious: No
  Sender: FDA-Public Use
  Company Number: US-PFIZER INC-2012126536

PATIENT
  Sex: Female

DRUGS (2)
  1. ADVIL COLD AND SINUS [Suspect]
     Indication: SINUS DISORDER
  2. ADVIL COLD AND SINUS [Suspect]
     Indication: SINUSITIS
     Dosage: 200 MG, UNK
     Route: 048

REACTIONS (4)
  - PRODUCT QUALITY ISSUE [None]
  - POOR QUALITY DRUG ADMINISTERED [None]
  - FATIGUE [None]
  - SEDATION [None]
